FAERS Safety Report 9202267 (Version 2)
Quarter: 2013Q4

REPORT INFORMATION
  Report Type: Spontaneous
  Country: US (occurrence: US)
  Receive Date: 20130401
  Receipt Date: 20131202
  Transmission Date: 20140711
  Serious: Yes (Hospitalization, Other)
  Sender: FDA-Public Use
  Company Number: US-BAYER-2013-038616

PATIENT
  Age: 36 Year
  Sex: Female

DRUGS (7)
  1. YAZ [Suspect]
     Indication: ORAL CONTRACEPTION
     Route: 048
  2. YASMIN [Suspect]
     Indication: ORAL CONTRACEPTION
     Route: 048
  3. OCELLA [Suspect]
     Indication: ORAL CONTRACEPTION
     Route: 048
  4. MAGNESIUM CITRATE [Concomitant]
     Dosage: ONCE A DAY, PRN
     Dates: start: 20090818, end: 20090824
  5. ACETAMINOPHEN [Concomitant]
     Dosage: 325 UNK, Q4HR PRN
  6. IBUPROFEN [Concomitant]
     Dosage: 200 MG, PRN EVERY 4 HOURS
  7. IBUPROFEN [Concomitant]
     Dosage: 600 MG, PRN, EVERY 6 HOURS

REACTIONS (6)
  - Biliary dyskinesia [None]
  - Cholecystitis [None]
  - Gallbladder injury [None]
  - Pain [None]
  - Injury [None]
  - Pain [None]
